FAERS Safety Report 22126444 (Version 3)
Quarter: 2023Q1

REPORT INFORMATION
  Report Type: Spontaneous
  Country: US (occurrence: US)
  Receive Date: 20230322
  Receipt Date: 20230322
  Transmission Date: 20230418
  Serious: No
  Sender: FDA-Public Use
  Company Number: US-ALLERGAN-2306313US

PATIENT
  Sex: Female

DRUGS (3)
  1. LATISSE [Suspect]
     Active Substance: BIMATOPROST
     Indication: Eyelash thickening
     Dosage: UNK, QD
     Route: 047
  2. LATISSE [Suspect]
     Active Substance: BIMATOPROST
     Indication: Eyelash thickening
     Dosage: UNK, QD
     Dates: start: 2022, end: 2022
  3. LATISSE [Suspect]
     Active Substance: BIMATOPROST
     Indication: Eyelash thickening
     Dosage: UNK, QD
     Route: 047
     Dates: start: 202209, end: 202302

REACTIONS (3)
  - Eyelash discolouration [Not Recovered/Not Resolved]
  - Eyelash changes [Not Recovered/Not Resolved]
  - Drug ineffective [Unknown]
